FAERS Safety Report 10235723 (Version 1)
Quarter: 2014Q2

REPORT INFORMATION
  Report Type: Spontaneous
  Country: US (occurrence: None)
  Receive Date: 20140612
  Receipt Date: 20140612
  Transmission Date: 20141212
  Serious: Yes (Hospitalization)
  Sender: FDA-Public Use
  Company Number: None

PATIENT
  Age: 54 Year
  Sex: Female
  Weight: 77.11 kg

DRUGS (2)
  1. NEXIUM 40MG ASTRAZENICA [Suspect]
     Indication: GASTROOESOPHAGEAL REFLUX DISEASE
     Dosage: ONE PILL ONCE DAILY TAKEN BY MOUTH?OVER EIGHT YEARS
     Route: 048
  2. NEXIUM 40MG ASTRAZENICA [Suspect]
     Indication: HIATUS HERNIA
     Dosage: ONE PILL ONCE DAILY TAKEN BY MOUTH?OVER EIGHT YEARS
     Route: 048

REACTIONS (6)
  - Pain [None]
  - Fracture [None]
  - Foot deformity [None]
  - Foot deformity [None]
  - Device dislocation [None]
  - Surgical procedure repeated [None]
